FAERS Safety Report 5731735-6 (Version None)
Quarter: 2008Q2

REPORT INFORMATION
  Report Type: 
  Country: None (occurrence: None)
  Receive Date: 20080506
  Receipt Date: 20080506
  Transmission Date: 20081010
  Serious: No
  Sender: FDA-Public Use
  Company Number: None

PATIENT
  Age: 44 Year
  Sex: Female
  Weight: 72.5755 kg

DRUGS (2)
  1. GENTAMICIN [Suspect]
     Indication: ARTHRITIS INFECTIVE
     Dosage: 450MG IUPB 1XDAILY
     Dates: start: 20070803, end: 20070820
  2. GENTAMICIN [Suspect]
     Indication: PSEUDOMONAS INFECTION
     Dosage: 450MG IUPB 1XDAILY
     Dates: start: 20070803, end: 20070820

REACTIONS (13)
  - ALTERED VISUAL DEPTH PERCEPTION [None]
  - AMNESIA [None]
  - BALANCE DISORDER [None]
  - DIZZINESS [None]
  - GAIT DISTURBANCE [None]
  - HEARING IMPAIRED [None]
  - IMPAIRED WORK ABILITY [None]
  - MOTOR DYSFUNCTION [None]
  - SINUSITIS [None]
  - TINNITUS [None]
  - TREMOR [None]
  - VESTIBULAR DISORDER [None]
  - VISUAL DISTURBANCE [None]
